FAERS Safety Report 4481072-5 (Version None)
Quarter: 2004Q4

REPORT INFORMATION
  Report Type: 
  Country: None (occurrence: None)
  Receive Date: 20041020
  Receipt Date: 20041020
  Transmission Date: 20050328
  Serious: Yes (Hospitalization)
  Sender: FDA-Public Use
  Company Number: None

PATIENT
  Age: 38 Year
  Sex: Female
  Weight: 44.4525 kg

DRUGS (3)
  1. BACTRIM [Suspect]
     Indication: URINARY TRACT INFECTION
     Dosage: ONE TAB PO BID
     Route: 048
     Dates: start: 20000610, end: 20000621
  2. MULTI-VITAMINS [Concomitant]
  3. VITAMIN C [Concomitant]

REACTIONS (5)
  - BLISTER [None]
  - EYE DISORDER [None]
  - ORAL MUCOSAL BLISTERING [None]
  - PYREXIA [None]
  - RASH [None]
